FAERS Safety Report 5833199-0 (Version None)
Quarter: 2008Q3

REPORT INFORMATION
  Report Type: 
  Country: None (occurrence: None)
  Receive Date: 20080805
  Receipt Date: 20080728
  Transmission Date: 20090109
  Serious: Yes (Hospitalization, Other)
  Sender: FDA-Public Use
  Company Number: US-ELI_LILLY_AND_COMPANY-US200806005959

PATIENT
  Age: 75 Year
  Sex: Female

DRUGS (1)
  1. SYMBYAX [Suspect]
     Indication: WEIGHT INCREASED
     Dates: start: 20080501, end: 20080101

REACTIONS (3)
  - FRACTURE [None]
  - HYPERCALCAEMIA [None]
  - RENAL FAILURE ACUTE [None]
